FAERS Safety Report 5642791-8 (Version None)
Quarter: 2008Q1

REPORT INFORMATION
  Report Type: 
  Country: None (occurrence: None)
  Receive Date: 20080227
  Receipt Date: 20080227
  Transmission Date: 20080703
  Serious: No
  Sender: FDA-Public Use
  Company Number: None

PATIENT
  Age: 14 Year
  Sex: Female
  Weight: 42.6381 kg

DRUGS (5)
  1. INDOMETHACIN [Suspect]
     Dates: start: 20071109, end: 20071112
  2. LYRICA [Suspect]
     Indication: FIBROMYALGIA
     Dosage: 150 MG; 450 MG
     Dates: start: 20070101
  3. IBUPROFEN (IBUPROFEN) [Suspect]
     Indication: ANALGESIA
     Dates: start: 20071001
  4. CYMBALTA [Suspect]
     Indication: FIBROMYALGIA
     Dates: start: 20071101
  5. SYNTHROID [Concomitant]

REACTIONS (10)
  - CONDITION AGGRAVATED [None]
  - DRUG INEFFECTIVE [None]
  - MIGRAINE [None]
  - MUSCLE SPASMS [None]
  - MUSCLE TWITCHING [None]
  - PAPILLOEDEMA [None]
  - PROCEDURAL PAIN [None]
  - VISUAL DISTURBANCE [None]
  - VISUAL FIELD DEFECT [None]
  - WISDOM TEETH REMOVAL [None]
